FAERS Safety Report 25914102 (Version 3)
Quarter: 2025Q4

REPORT INFORMATION
  Report Type: Spontaneous
  Country: CA (occurrence: CA)
  Receive Date: 20251013
  Receipt Date: 20251208
  Transmission Date: 20260117
  Serious: Yes (Other)
  Sender: PFIZER
  Company Number: CA-PFIZER INC-202500122538

PATIENT
  Age: 24 Year
  Sex: Female
  Weight: 57 kg

DRUGS (5)
  1. IXIFI [Suspect]
     Active Substance: INFLIXIMAB-QBTX
     Indication: Crohn^s disease
     Dosage: 440 MG, FIRST TREATMENT (8 MG/KG, EVERY 8 WEEK)
     Route: 042
     Dates: start: 20250616
  2. IXIFI [Suspect]
     Active Substance: INFLIXIMAB-QBTX
     Dosage: 8 MG/KG, EVERY 8 WEEK
     Route: 042
     Dates: start: 20250811
  3. IXIFI [Suspect]
     Active Substance: INFLIXIMAB-QBTX
     Dosage: 456 MG, EVERY 8 WEEK
     Route: 042
     Dates: start: 20251008
  4. IXIFI [Suspect]
     Active Substance: INFLIXIMAB-QBTX
     Dosage: 5 MG/KG, EVERY 8 WEEK
     Route: 042
     Dates: start: 2025
  5. IXIFI [Suspect]
     Active Substance: INFLIXIMAB-QBTX
     Dosage: 290 MG, 8 WEEKS (EVERY 8 WEEK)
     Route: 042
     Dates: start: 20251201

REACTIONS (8)
  - Neurogenic shock [Recovered/Resolved]
  - Vaginal discharge [Recovering/Resolving]
  - Anal fissure [Recovered/Resolved]
  - Abdominal pain lower [Not Recovered/Not Resolved]
  - Vaginal infection [Recovering/Resolving]
  - Condition aggravated [Recovering/Resolving]
  - Heat stroke [Recovered/Resolved]
  - Pain [Recovered/Resolved]

NARRATIVE: CASE EVENT DATE: 20250101
